FAERS Safety Report 6468220-2 (Version None)
Quarter: 2009Q4

REPORT INFORMATION
  Report Type: 
  Country: None (occurrence: None)
  Receive Date: 20091130
  Receipt Date: 20091118
  Transmission Date: 20100525
  Serious: No
  Sender: FDA-Public Use
  Company Number: FLUOROURACIL-OCT-10(09

PATIENT
  Age: 53 Year
  Sex: Male

DRUGS (9)
  1. FLUOROURACIL [Suspect]
     Indication: COLON CANCER STAGE III
     Dosage: 400 MG/M2, 46H INFUSION
  2. OXALIPLATIN [Suspect]
     Indication: COLON CANCER STAGE III
     Dosage: 85 MG/M2
  3. AMLODIPINE [Concomitant]
  4. QUINAPRIL [Concomitant]
  5. HYDROCHLORORTHIAZIDE [Concomitant]
  6. TTORVASTATIN [Concomitant]
  7. DEXAMETHASONE TAB [Concomitant]
  8. ONDANSETRON [Concomitant]
  9. FOLINIC ACID [Concomitant]

REACTIONS (5)
  - COMA [None]
  - ENCEPHALOPATHY [None]
  - FATIGUE [None]
  - GRAND MAL CONVULSION [None]
  - MUSCULAR WEAKNESS [None]
